FAERS Safety Report 18829612 (Version 3)
Quarter: 2022Q1

REPORT INFORMATION
  Report Type: Spontaneous
  Country: US (occurrence: US)
  Receive Date: 20210201
  Receipt Date: 20220201
  Transmission Date: 20220423
  Serious: Yes (Hospitalization, Other)
  Sender: FDA-Public Use
  Company Number: US-ABBVIE-20K-163-3578126-00

PATIENT
  Sex: Female
  Weight: 68.100 kg

DRUGS (10)
  1. HUMIRA [Suspect]
     Active Substance: ADALIMUMAB
     Indication: Product used for unknown indication
     Dosage: FOR ALMOST 19 YEARS
     Route: 058
  2. OXYCODONE [Concomitant]
     Active Substance: OXYCODONE
     Indication: Pain
  3. OXYCODONE [Concomitant]
     Active Substance: OXYCODONE
     Indication: Rheumatoid arthritis
  4. OXYCODONE [Concomitant]
     Active Substance: OXYCODONE
     Indication: Osteoarthritis
  5. TIZANIDINE [Concomitant]
     Active Substance: TIZANIDINE
     Indication: Pain
  6. TIZANIDINE [Concomitant]
     Active Substance: TIZANIDINE
     Indication: Muscle spasms
  7. CYMBALTA [Concomitant]
     Active Substance: DULOXETINE HYDROCHLORIDE
     Indication: Fibromyalgia
  8. CHLORMEZANONE\IBUPROFEN\METAMIZOLE SODIUM [Concomitant]
     Active Substance: CHLORMEZANONE\IBUPROFEN\METAMIZOLE SODIUM
     Indication: Hypertension
  9. CHLORMEZANONE\IBUPROFEN\METAMIZOLE SODIUM [Concomitant]
     Active Substance: CHLORMEZANONE\IBUPROFEN\METAMIZOLE SODIUM
     Indication: Blood cholesterol
  10. GABAPENTIN [Concomitant]
     Active Substance: GABAPENTIN
     Indication: Neuralgia

REACTIONS (1)
  - Basosquamous carcinoma of skin [Not Recovered/Not Resolved]

NARRATIVE: CASE EVENT DATE: 20190101
